FAERS Safety Report 12331247 (Version 1)
Quarter: 2016Q2

REPORT INFORMATION
  Report Type: Spontaneous
  Country: AT (occurrence: AT)
  Receive Date: 20160504
  Receipt Date: 20160504
  Transmission Date: 20160815
  Serious: Yes (Life-Threatening, Other)
  Sender: FDA-Public Use
  Company Number: AT-WATSON-2016-08905

PATIENT
  Age: 16 Year
  Sex: Male

DRUGS (2)
  1. ETOPOSIDE (UNKNOWN) [Suspect]
     Active Substance: ETOPOSIDE
     Indication: PRODUCT USED FOR UNKNOWN INDICATION
     Dosage: 1800 MG/M2, DAILY - DAY 4
     Route: 065
  2. LEVETIRACETAM (UNKNOWN) [Suspect]
     Active Substance: LEVETIRACETAM
     Indication: SEIZURE
     Dosage: 30 MG/KG, DAILY
     Route: 065

REACTIONS (6)
  - Febrile neutropenia [Unknown]
  - Pneumonia [Unknown]
  - Respiratory failure [Unknown]
  - Transplant failure [Recovered/Resolved]
  - Klebsiella sepsis [Unknown]
  - Mucosal inflammation [Unknown]
